FAERS Safety Report 8713604 (Version 2)
Quarter: 2012Q4

REPORT INFORMATION
  Report Type: 
  Country: US (occurrence: US)
  Receive Date: 20120808
  Receipt Date: 20120828
  Transmission Date: 20130627
  Serious: Yes (Other)
  Sender: FDA-Public Use
  Company Number: US-FRI-1000037595

PATIENT
  Age: 38 Year
  Sex: Male

DRUGS (4)
  1. VIIBRYD [Suspect]
     Indication: MAJOR DEPRESSION
     Dosage: 10 mg
     Dates: start: 20120419, end: 20120425
  2. VIIBRYD [Suspect]
     Dosage: 20 mg
     Dates: start: 20120426, end: 20120502
  3. VIIBRYD [Suspect]
     Indication: MAJOR DEPRESSION
     Dosage: 40 mg
     Dates: start: 20120503, end: 20120604
  4. DIAZEPAM [Concomitant]
     Indication: GENERALISED ANXIETY DISORDER
     Dosage: 10 mg every 8 hours prn

REACTIONS (1)
  - Suicidal ideation [Recovered/Resolved]
